FAERS Safety Report 4295242-2 (Version None)
Quarter: 2004Q1

REPORT INFORMATION
  Report Type: 
  Country: None (occurrence: None)
  Receive Date: 20040216
  Receipt Date: 20030425
  Transmission Date: 20041129
  Serious: No
  Sender: FDA-Public Use
  Company Number: US-GLAXOSMITHKLINE-A0406278A

PATIENT
  Age: 68 Year
  Sex: Female

DRUGS (3)
  1. LAMICTAL [Suspect]
     Indication: PARTIAL SEIZURES
     Route: 048
     Dates: start: 20030314
  2. XANAX [Concomitant]
  3. CLONOPIN [Concomitant]

REACTIONS (2)
  - DIARRHOEA [None]
  - RASH [None]
